FAERS Safety Report 7961849-1 (Version None)
Quarter: 2011Q4

REPORT INFORMATION
  Report Type: 
  Country: None (occurrence: None)
  Receive Date: 20111207
  Receipt Date: 20111130
  Transmission Date: 20120403
  Serious: Yes (Other)
  Sender: FDA-Public Use
  Company Number: JP-ROCHE-1010648

PATIENT
  Age: 48 Year
  Sex: Male

DRUGS (7)
  1. TACROLIMUS [Concomitant]
     Dosage: DOSAGE IS UNCERTAIN
     Route: 048
  2. CYCLOSPORINE [Concomitant]
     Dosage: DOSAGE IS UNCERTAIN
     Route: 048
  3. MYCOPHENOLATE MOFETIL (CELLCEPT) [Suspect]
     Indication: PROPHYLAXIS AGAINST TRANSPLANT REJECTION
     Dosage: DOSAGE IS UNCERTAIN
     Route: 048
  4. PREDNISOLONE [Concomitant]
     Dosage: DOSAGE IS UNCERTAIN
     Route: 048
  5. ADRENAL HORMONE PREPARATION (UNK INGREDIENTS) [Concomitant]
     Dosage: DOSAGE IS UNCERTAIN
     Route: 042
  6. BASILIXIMAB [Concomitant]
     Dosage: DOSAGE IS UNCERTAIN
     Route: 042
  7. SPANIDIN [Concomitant]
     Dosage: DOSAGE IS UNCERTAIN
     Route: 042

REACTIONS (5)
  - CARDIAC FAILURE [None]
  - HERPES ZOSTER [None]
  - ATRIAL FIBRILLATION [None]
  - URINARY RETENTION [None]
  - NECROTISING HERPETIC RETINOPATHY [None]
